FAERS Safety Report 25431120 (Version 2)
Quarter: 2025Q2

REPORT INFORMATION
  Report Type: Spontaneous
  Country: US (occurrence: US)
  Receive Date: 20250612
  Receipt Date: 20250617
  Transmission Date: 20250716
  Serious: No
  Sender: AMGEN
  Company Number: US-AMGEN-USASP2025114121

PATIENT
  Age: 41 Year
  Sex: Male

DRUGS (15)
  1. OTEZLA [Suspect]
     Active Substance: APREMILAST
     Indication: Psoriasis
     Dosage: 30 MILLIGRAM, BID
     Route: 048
     Dates: start: 20240830
  2. PREDNISONE [Suspect]
     Active Substance: PREDNISONE
     Indication: Product used for unknown indication
     Route: 065
  3. AZITHROMYCIN [Concomitant]
     Active Substance: AZITHROMYCIN
  4. BENZONATATE [Concomitant]
     Active Substance: BENZONATATE
  5. CELECOXIB [Concomitant]
     Active Substance: CELECOXIB
  6. CLOBETASOL [Concomitant]
     Active Substance: CLOBETASOL
  7. HYDROXYZINE HYDROCHLORIDE [Concomitant]
     Active Substance: HYDROXYZINE HYDROCHLORIDE
  8. IBUPROFEN [Concomitant]
     Active Substance: IBUPROFEN
  9. METHYLPREDNISOLONE [Concomitant]
     Active Substance: METHYLPREDNISOLONE
  10. MINOXIDIL [Concomitant]
     Active Substance: MINOXIDIL
  11. OPZELURA [Concomitant]
     Active Substance: RUXOLITINIB PHOSPHATE
  12. OSELTAMIVIR [Concomitant]
     Active Substance: OSELTAMIVIR
  13. TACROLIMUS [Concomitant]
     Active Substance: TACROLIMUS
  14. TRAZODONE [Concomitant]
     Active Substance: TRAZODONE HYDROCHLORIDE
  15. ZOLPIDEM [Concomitant]
     Active Substance: ZOLPIDEM TARTRATE

REACTIONS (2)
  - Therapy non-responder [Unknown]
  - Product dose omission issue [Unknown]
